FAERS Safety Report 7584660-2 (Version None)
Quarter: 2011Q2

REPORT INFORMATION
  Report Type: 
  Country: None (occurrence: None)
  Receive Date: 20110630
  Receipt Date: 20110623
  Transmission Date: 20111010
  Serious: Yes (Other)
  Sender: FDA-Public Use
  Company Number: US-ROCHE-786183

PATIENT
  Sex: Female

DRUGS (1)
  1. AVASTIN [Suspect]
     Route: 042
     Dates: start: 20090101

REACTIONS (2)
  - DISEASE PROGRESSION [None]
  - DRUG EFFECT DECREASED [None]
